FAERS Safety Report 18569922 (Version 3)
Quarter: 2020Q4

REPORT INFORMATION
  Report Type: Report from Study
  Country: CN (occurrence: CN)
  Receive Date: 20201202
  Receipt Date: 20201210
  Transmission Date: 20210114
  Serious: Yes (Death, Other)
  Sender: FDA-Public Use
  Company Number: CN-ASTRAZENECA-2020SF59251

PATIENT
  Age: 26143 Day
  Sex: Male
  Weight: 60 kg

DRUGS (7)
  1. TAGRISSO [Suspect]
     Active Substance: OSIMERTINIB
     Indication: LUNG ADENOCARCINOMA
     Route: 048
     Dates: start: 20200804, end: 20201015
  2. TAGRISSO [Suspect]
     Active Substance: OSIMERTINIB
     Indication: NON-SMALL CELL LUNG CANCER
     Route: 048
     Dates: start: 20200804, end: 20201015
  3. TAGRISSO [Suspect]
     Active Substance: OSIMERTINIB
     Indication: NON-SMALL CELL LUNG CANCER
     Route: 048
     Dates: start: 20200804, end: 20201114
  4. TAGRISSO [Suspect]
     Active Substance: OSIMERTINIB
     Indication: LUNG ADENOCARCINOMA
     Route: 048
     Dates: start: 20200804, end: 20201114
  5. MANNITOL. [Concomitant]
     Active Substance: MANNITOL
  6. AMINO ACIDS [Concomitant]
     Active Substance: AMINO ACIDS, SOURCE UNSPECIFIED
  7. MARTINOL [Concomitant]
     Indication: PAIN
     Dosage: 2 TABLETS Q12H AND 2 TABLETS AT THE END. 3 TABLETS WERE TAKEN FOR A PERIOD OF TIME IN THE MIDDLE,...

REACTIONS (2)
  - Coma [Unknown]
  - Dysphagia [Unknown]
